FAERS Safety Report 4317852-6 (Version None)
Quarter: 2004Q1

REPORT INFORMATION
  Report Type: 
  Country: None (occurrence: None)
  Receive Date: 20040316
  Receipt Date: 20040122
  Transmission Date: 20041129
  Serious: Yes (Hospitalization)
  Sender: FDA-Public Use
  Company Number: US-BRISTOL-MYERS SQUIBB COMPANY-12485025

PATIENT
  Age: 33 Year
  Sex: Female

DRUGS (3)
  1. SERZONE [Suspect]
     Indication: DEPRESSION
     Dosage: TOOK ^VARYING DOSES^ BETWEEN DEC-00 AND THE PRESENT TIME
     Route: 048
     Dates: start: 20001201
  2. KLONOPIN [Concomitant]
     Dosage: EVERY EVENING
  3. AMBIEN [Concomitant]

REACTIONS (5)
  - ALCOHOL USE [None]
  - NAUSEA [None]
  - PREGNANCY [None]
  - PREMATURE LABOUR [None]
  - VOMITING [None]
